FAERS Safety Report 10066830 (Version 2)
Quarter: 2014Q2

REPORT INFORMATION
  Report Type: Spontaneous
  Country: FR (occurrence: FR)
  Receive Date: 20140408
  Receipt Date: 20140408
  Transmission Date: 20141212
  Serious: Yes (Hospitalization)
  Sender: FDA-Public Use
  Company Number: FR-MYLANLABS-2014S1002652

PATIENT
  Age: 25 Year
  Sex: Female
  Weight: 54 kg

DRUGS (5)
  1. DESLORATADINE [Suspect]
     Indication: RHINITIS ALLERGIC
     Route: 048
     Dates: start: 20130429, end: 20130506
  2. PIVALONE /00803802/ [Concomitant]
     Indication: LARYNGITIS
     Route: 045
     Dates: start: 20130423, end: 20130430
  3. SOLUPRED [Concomitant]
     Indication: LARYNGITIS
     Route: 048
     Dates: start: 20130423, end: 20130425
  4. AMOXICILLIN [Concomitant]
     Indication: LARYNGITIS
     Route: 048
     Dates: start: 20130423, end: 20130501
  5. MEGAMYLASE /00766101/ [Concomitant]
     Indication: LARYNGITIS
     Route: 048
     Dates: start: 20130423, end: 20130427

REACTIONS (2)
  - Angioedema [Recovered/Resolved]
  - Rash pruritic [Recovered/Resolved]
